FAERS Safety Report 17863936 (Version 1)
Quarter: 2020Q2

REPORT INFORMATION
  Report Type: Spontaneous
  Country: DE (occurrence: DE)
  Receive Date: 20200605
  Receipt Date: 20200605
  Transmission Date: 20200714
  Serious: Yes (Other)
  Sender: FDA-Public Use
  Company Number: DE-LUPIN PHARMACEUTICALS INC.-2020-02586

PATIENT
  Age: 50 Year
  Sex: Male

DRUGS (15)
  1. TENORETIC [Concomitant]
     Active Substance: ATENOLOL\CHLORTHALIDONE
     Indication: PRODUCT USED FOR UNKNOWN INDICATION
     Dosage: 1 DOSAGE FORM, QD
     Route: 065
  2. FLUVOXAMINE [Interacting]
     Active Substance: FLUVOXAMINE
     Indication: PRODUCT USED FOR UNKNOWN INDICATION
     Dosage: UNK
     Route: 065
  3. PROMAZINE [Interacting]
     Active Substance: PROMAZINE
     Indication: PERSONALITY DISORDER
     Dosage: 100 MILLIGRAM, BID
     Route: 065
  4. MIRTAZAPINE. [Concomitant]
     Active Substance: MIRTAZAPINE
     Indication: PRODUCT USED FOR UNKNOWN INDICATION
     Dosage: UNK UNK, QD (15-22.5 MG/DAY)
     Route: 065
  5. QUETIAPINE FUMARATE. [Suspect]
     Active Substance: QUETIAPINE FUMARATE
     Indication: PERSONALITY DISORDER
     Dosage: UNK UNK, QD (100-300 MG DAILY)
     Route: 065
  6. ZUCLOPENTHIXOL [Interacting]
     Active Substance: ZUCLOPENTHIXOL
     Indication: PERSONALITY DISORDER
     Dosage: 20 MILLIGRAM, QD
     Route: 065
  7. ZUCLOPENTHIXOL [Interacting]
     Active Substance: ZUCLOPENTHIXOL
     Dosage: UNK (40 + 50 MG)
     Route: 065
  8. CLOZAPINE. [Interacting]
     Active Substance: CLOZAPINE
     Indication: PERSONALITY DISORDER
     Dosage: UNK
     Route: 065
  9. LORAZEPAM. [Concomitant]
     Active Substance: LORAZEPAM
     Indication: PRODUCT USED FOR UNKNOWN INDICATION
     Dosage: UNK (3.5 + 1 MG)
     Route: 048
  10. ESCITALOPRAM [Interacting]
     Active Substance: ESCITALOPRAM OXALATE
     Indication: PRODUCT USED FOR UNKNOWN INDICATION
     Dosage: 10 MILLIGRAM, QD
     Route: 065
  11. VALPROATE SODIUM. [Concomitant]
     Active Substance: VALPROATE SODIUM
     Indication: PRODUCT USED FOR UNKNOWN INDICATION
     Dosage: 1000 MILLIGRAM, QD
     Route: 065
  12. QUETIAPINE FUMARATE. [Interacting]
     Active Substance: QUETIAPINE FUMARATE
     Dosage: 400 MILLIGRAM, QD
     Route: 065
  13. ZUCLOPENTHIXOL [Interacting]
     Active Substance: ZUCLOPENTHIXOL
     Dosage: 30 MILLIGRAM, QD
     Route: 065
  14. OLANZAPINE. [Interacting]
     Active Substance: OLANZAPINE
     Indication: PERSONALITY DISORDER
     Dosage: 10 MILLIGRAM, QD
     Route: 065
  15. VALPROATE SODIUM. [Concomitant]
     Active Substance: VALPROATE SODIUM
     Dosage: UNK UNK, QD (500-1000 MG)
     Route: 065

REACTIONS (2)
  - Drug interaction [Unknown]
  - Priapism [Recovered/Resolved]
